FAERS Safety Report 17402970 (Version 1)
Quarter: 2020Q1

REPORT INFORMATION
  Report Type: Report from Study
  Country: US (occurrence: US)
  Receive Date: 20200211
  Receipt Date: 20200211
  Transmission Date: 20200409
  Serious: Yes (Other)
  Sender: FDA-Public Use
  Company Number: US-GILEAD-2020-0450357

PATIENT
  Age: 12 Year
  Sex: Male

DRUGS (1)
  1. AZTREONAM LYSINE [Suspect]
     Active Substance: AZTREONAM LYSINE
     Indication: BURKHOLDERIA MALLEI INFECTION
     Dosage: UNK, TID 28 DAYS ON AND 28 DAYS OFF
     Route: 065
     Dates: start: 20200202

REACTIONS (7)
  - Off label use [Not Recovered/Not Resolved]
  - Cough [Unknown]
  - Burkholderia mallei infection [Unknown]
  - Abdominal pain upper [Unknown]
  - Sputum increased [Unknown]
  - Dizziness [Unknown]
  - Headache [Unknown]

NARRATIVE: CASE EVENT DATE: 201902
